FAERS Safety Report 5373448-9 (Version None)
Quarter: 2007Q2

REPORT INFORMATION
  Report Type: 
  Country: None (occurrence: None)
  Receive Date: 20070628
  Receipt Date: 20070620
  Transmission Date: 20071010
  Serious: Yes (Hospitalization)
  Sender: FDA-Public Use
  Company Number: US-AMGEN-STX229371

PATIENT
  Sex: Male

DRUGS (6)
  1. ENBREL [Suspect]
     Indication: RHEUMATOID ARTHRITIS
     Route: 058
     Dates: start: 20040101
  2. METHOTREXATE [Suspect]
     Route: 058
     Dates: start: 20061001
  3. MOBIC [Suspect]
     Route: 048
     Dates: start: 20061001
  4. VICODIN ES [Suspect]
     Dates: start: 20061001
  5. ZANTAC [Suspect]
     Dates: start: 20061001
  6. LORAZEPAM [Suspect]
     Dates: start: 20061001

REACTIONS (1)
  - OSTEONECROSIS [None]
